FAERS Safety Report 23808969 (Version 1)
Quarter: 2024Q2

REPORT INFORMATION
  Report Type: Spontaneous
  Country: US (occurrence: None)
  Receive Date: 20240501
  Receipt Date: 20240501
  Transmission Date: 20240716
  Serious: Yes (Hospitalization)
  Sender: FDA-Public Use
  Company Number: None

PATIENT
  Age: 76 Year
  Sex: Male

DRUGS (1)
  1. TICAGRELOR [Suspect]
     Active Substance: TICAGRELOR
     Indication: Angioplasty
     Dates: start: 20221215, end: 20221217

REACTIONS (3)
  - Angioedema [None]
  - Pharyngeal swelling [None]
  - Swelling [None]

NARRATIVE: CASE EVENT DATE: 20221217
